FAERS Safety Report 17681276 (Version 2)
Quarter: 2021Q4

REPORT INFORMATION
  Report Type: Report from Study
  Country: IT (occurrence: IT)
  Receive Date: 20200417
  Receipt Date: 20211228
  Transmission Date: 20220303
  Serious: Yes (Other)
  Sender: FDA-Public Use
  Company Number: None

PATIENT
  Age: 46 Year
  Sex: Female

DRUGS (5)
  1. ZOLEDRONIC ACID [Interacting]
     Active Substance: ZOLEDRONIC ACID
     Indication: Metastases to bone
     Dosage: 1 DOSAGE FORM, TOTAL
     Route: 042
     Dates: start: 20150901, end: 20150901
  2. ZOLEDRONIC ACID [Interacting]
     Active Substance: ZOLEDRONIC ACID
     Dosage: 1 DOSAGE FORM
     Route: 042
     Dates: start: 20150901, end: 20170101
  3. BEVACIZUMAB [Interacting]
     Active Substance: BEVACIZUMAB
     Indication: Breast neoplasm
     Dosage: 1 DOSAGE FORM, CYCLE
     Route: 042
     Dates: start: 20160401, end: 20190801
  4. BEVACIZUMAB [Interacting]
     Active Substance: BEVACIZUMAB
     Dosage: 1 DOSAGE FORM, CYCLE
     Route: 042
     Dates: start: 20160401, end: 20160801
  5. DENOSUMAB [Suspect]
     Active Substance: DENOSUMAB
     Indication: Osteoporosis
     Dosage: 1 DOSAGE FORM, TOTAL
     Route: 058
     Dates: start: 20170101, end: 20170101

REACTIONS (2)
  - Drug interaction [Recovered/Resolved with Sequelae]
  - Osteonecrosis of jaw [Recovered/Resolved]

NARRATIVE: CASE EVENT DATE: 20190822
